FAERS Safety Report 7505473-3 (Version None)
Quarter: 2011Q2

REPORT INFORMATION
  Report Type: 
  Country: None (occurrence: None)
  Receive Date: 20110526
  Receipt Date: 20110524
  Transmission Date: 20111010
  Serious: Yes (Hospitalization)
  Sender: FDA-Public Use
  Company Number: PT-TEVA-283181ISR

PATIENT
  Sex: Female
  Weight: 59.2 kg

DRUGS (11)
  1. OMEPRAZOLE [Concomitant]
     Indication: PROPHYLAXIS
     Dosage: 40 MILLIGRAM;
     Route: 042
     Dates: start: 20110425, end: 20110503
  2. DEXAMETHASONE [Suspect]
     Indication: MULTIPLE MYELOMA
     Dates: start: 20100212, end: 20110423
  3. LENALIDOMIDE [Suspect]
     Route: 048
     Dates: start: 20100726
  4. LENALIDOMIDE [Suspect]
     Indication: MULTIPLE MYELOMA
     Route: 048
     Dates: start: 20100212, end: 20110426
  5. LENALIDOMIDE [Suspect]
     Route: 048
     Dates: start: 20110207, end: 20110215
  6. ACETAMINOPHEN [Concomitant]
     Indication: PYREXIA
     Dates: start: 20110425, end: 20110503
  7. ASPIRIN [Concomitant]
     Indication: THROMBOSIS PROPHYLAXIS
     Dosage: 100 MILLIGRAM;
     Route: 048
     Dates: start: 20100212, end: 20110224
  8. LENALIDOMIDE [Suspect]
     Route: 048
     Dates: start: 20110217
  9. DEXAMETHASONE [Suspect]
     Dates: start: 20110207, end: 20110228
  10. DEXAMETHASONE [Suspect]
     Dates: start: 20100726
  11. ENOXAPARIN [Concomitant]
     Indication: THROMBOSIS PROPHYLAXIS
     Dosage: 20 MILLIGRAM;
     Route: 058
     Dates: start: 20100225, end: 20110503

REACTIONS (2)
  - TRACHEOBRONCHITIS [None]
  - DIABETES MELLITUS [None]
